FAERS Safety Report 9259896 (Version 3)
Quarter: 2013Q2

REPORT INFORMATION
  Report Type: Spontaneous
  Country: US (occurrence: US)
  Receive Date: 20130429
  Receipt Date: 20130613
  Transmission Date: 20140414
  Serious: No
  Sender: FDA-Public Use
  Company Number: US-009507513-1304USA015220

PATIENT
  Age: 36 Year
  Sex: Female
  Weight: 74.38 kg

DRUGS (5)
  1. PREGNYL [Suspect]
     Indication: OOCYTE HARVEST
     Dosage: 10000 IU, ONCE
     Route: 030
     Dates: start: 20130421, end: 20130421
  2. PREGNYL [Suspect]
     Indication: OVULATION INDUCTION
  3. FOLLISTIM AQ CARTRIDGE [Concomitant]
     Indication: IN VITRO FERTILISATION
     Dosage: 250 IU, QD
     Route: 058
     Dates: start: 20130413, end: 20130420
  4. LUPRON [Concomitant]
     Indication: IN VITRO FERTILISATION
     Dosage: 0.2-0.5
     Route: 058
     Dates: start: 20130402, end: 20130420
  5. DECADRON TABLETS [Concomitant]
     Indication: PRODUCT USED FOR UNKNOWN INDICATION

REACTIONS (1)
  - Drug ineffective [Not Recovered/Not Resolved]
